FAERS Safety Report 8515768-2 (Version None)
Quarter: 2012Q3

REPORT INFORMATION
  Report Type: 
  Country: None (occurrence: None)
  Receive Date: 20120717
  Receipt Date: 20120706
  Transmission Date: 20120928
  Serious: No
  Sender: FDA-Public Use
  Company Number: US-B.I. PHARMACEUTICALS,INC./RIDGEFIELD-2012-BP-15153BP

PATIENT
  Sex: Male

DRUGS (11)
  1. LIPITOR [Concomitant]
     Indication: BLOOD CHOLESTEROL
  2. VESICARE [Concomitant]
     Indication: RENAL DISORDER
  3. QUINAPRIL [Concomitant]
     Indication: BLOOD PRESSURE
  4. SPIRIVA [Suspect]
     Dosage: 18 MCG
     Route: 048
     Dates: start: 20120706, end: 20120706
  5. PHENAZOPYRIDINE HCL TAB [Concomitant]
     Indication: RENAL DISORDER
  6. TRAMADOL HCL [Concomitant]
     Indication: PAIN
  7. FLOMAX [Suspect]
     Indication: PROSTATIC DISORDER
     Dosage: 0.4 MG
     Route: 048
     Dates: start: 20080101
  8. ALEVE [Concomitant]
     Indication: PAIN
  9. SPIRIVA [Suspect]
     Indication: CHRONIC OBSTRUCTIVE PULMONARY DISEASE
     Dosage: 18 MCG
     Route: 055
     Dates: start: 20080101
  10. ASPIRIN [Concomitant]
     Indication: CARDIAC DISORDER
  11. PROVENTIL [Concomitant]
     Indication: DYSPNOEA

REACTIONS (2)
  - INCORRECT ROUTE OF DRUG ADMINISTRATION [None]
  - ATRIAL FLUTTER [None]
